FAERS Safety Report 9783359 (Version 1)
Quarter: 2013Q4

REPORT INFORMATION
  Report Type: Spontaneous
  Country: JP (occurrence: JP)
  Receive Date: 20131226
  Receipt Date: 20131226
  Transmission Date: 20140711
  Serious: Yes (Other)
  Sender: FDA-Public Use
  Company Number: JP-TEVA-451146ISR

PATIENT
  Age: 75 Year
  Sex: Male

DRUGS (12)
  1. LANSOPRAZOLE-OD,TAB,15MG [Suspect]
     Dosage: 15 MILLIGRAM DAILY;
     Route: 048
  2. MEXITIL [Suspect]
     Dosage: 300 UNKNOWN DAILY;
     Route: 048
  3. LIPITOR [Suspect]
     Dosage: 10 UNKNOWN DAILY;
     Route: 048
  4. MUCODYNE [Concomitant]
     Dosage: 300 UNKNOWN DAILY;
     Route: 048
  5. BAYASPIRIN 100MG,TAB [Concomitant]
     Dosage: 100 UNKNOWN DAILY;
     Route: 048
  6. PLAVIX,TAB [Concomitant]
     Dosage: 75 UNKNOWN DAILY;
     Route: 048
  7. ALDACTONE-A [Concomitant]
     Dosage: 25 UNKNOWN DAILY;
     Route: 048
  8. XARELTO TABLETS [Concomitant]
     Dosage: 15 UNKNOWN DAILY;
     Route: 048
  9. ARTIST TABLETS [Concomitant]
     Dosage: 1.25 UNKNOWN DAILY;
     Route: 048
  10. TRAVATANZ OPHTHALMIC SOLUTION 0.004% [Concomitant]
     Route: 047
  11. HYALEIN OPHTHALMIC SOLUTION [Concomitant]
     Route: 047
  12. SANCOBA OPHTHALMIC SOLUTION 0.02% [Concomitant]
     Route: 047

REACTIONS (1)
  - Pneumonitis [Recovering/Resolving]
